FAERS Safety Report 4932958-6 (Version None)
Quarter: 2006Q1

REPORT INFORMATION
  Report Type: 
  Country: None (occurrence: None)
  Receive Date: 20060301
  Receipt Date: 20060301
  Transmission Date: 20060701
  Serious: Yes (Other)
  Sender: FDA-Public Use
  Company Number: None

PATIENT
  Sex: Male

DRUGS (1)
  1. CYTOGAM [Suspect]
     Indication: LUNG TRANSPLANT
     Dosage: IV
     Route: 042
     Dates: start: 20051013, end: 20051013

REACTIONS (2)
  - CHILLS [None]
  - INFUSION RELATED REACTION [None]
